FAERS Safety Report 4703612-0 (Version None)
Quarter: 2005Q2

REPORT INFORMATION
  Report Type: 
  Country: None (occurrence: None)
  Receive Date: 20050628
  Receipt Date: 20050617
  Transmission Date: 20051028
  Serious: Yes (Hospitalization)
  Sender: FDA-Public Use
  Company Number: KII-2005-0017091

PATIENT
  Age: 77 Year
  Sex: Female

DRUGS (5)
  1. OXYCONTIN [Suspect]
     Indication: PAIN
     Dosage: ORAL
     Route: 048
  2. DIGOXIN [Suspect]
     Indication: DRUG USE FOR UNKNOWN INDICATION
     Dosage: ORAL
     Route: 048
  3. ACETAMINOPHEN AND OXYCODONE HCL [Suspect]
     Indication: PAIN
     Dosage: SEE TEXT, ORAL
     Route: 048
  4. THYROID PREPARATION (INCLUDING SYNTHETICS AND EXTRACTS) [Suspect]
     Indication: DRUG USE FOR UNKNOWN INDICATION
     Dosage: SEE TEXT, ORAL
     Route: 048
  5. BIGUANIDES() [Suspect]
     Indication: DRUG USE FOR UNKNOWN INDICATION
     Dosage: ORAL
     Route: 048

REACTIONS (7)
  - ATRIOVENTRICULAR BLOCK [None]
  - BLOOD PRESSURE SYSTOLIC INCREASED [None]
  - HAEMOGLOBIN DECREASED [None]
  - MULTIPLE DRUG OVERDOSE [None]
  - SOMNOLENCE [None]
  - VENTRICULAR EXTRASYSTOLES [None]
  - VOMITING [None]
